FAERS Safety Report 10896228 (Version 2)
Quarter: 2015Q2

REPORT INFORMATION
  Report Type: Spontaneous
  Country: JP (occurrence: JP)
  Receive Date: 20150309
  Receipt Date: 20150408
  Transmission Date: 20150821
  Serious: Yes (Hospitalization, Other)
  Sender: FDA-Public Use
  Company Number: JP-UCBSA-2015006134

PATIENT
  Age: 52 Year
  Sex: Male

DRUGS (53)
  1. PHENOBAL [Concomitant]
     Active Substance: PHENOBARBITAL
     Indication: PRODUCT USED FOR UNKNOWN INDICATION
     Dosage: 160MG
     Route: 048
     Dates: start: 20140122, end: 20140513
  2. RISPERDAL [Concomitant]
     Active Substance: RISPERIDONE
     Dosage: 6MG
     Route: 048
     Dates: start: 20141224, end: 20150323
  3. SELENICA-R [Concomitant]
     Active Substance: SELENIUM
     Indication: PRODUCT USED FOR UNKNOWN INDICATION
     Dosage: 600 MG
     Route: 048
     Dates: start: 20141015, end: 20150106
  4. MIYA-BM [Concomitant]
     Active Substance: CLOSTRIDIUM BUTYRICUM SPORES STRAIN M-55
     Indication: PRODUCT USED FOR UNKNOWN INDICATION
     Dosage: 1G
     Route: 048
     Dates: end: 20140604
  5. MIYA-BM [Concomitant]
     Active Substance: CLOSTRIDIUM BUTYRICUM SPORES STRAIN M-55
     Dosage: 1.5G
     Route: 048
     Dates: start: 20140605
  6. KEPPRA [Suspect]
     Active Substance: LEVETIRACETAM
     Indication: EPILEPSY
     Dosage: 500 MG, ONCE DAILY (QD)
     Route: 048
     Dates: start: 20140409, end: 20140415
  7. KEPPRA [Suspect]
     Active Substance: LEVETIRACETAM
     Dosage: 1000 MG, ONCE DAILY (QD)
     Route: 048
     Dates: start: 20140416, end: 20140513
  8. KEPPRA [Suspect]
     Active Substance: LEVETIRACETAM
     Dosage: 1250 MG DAILY
     Route: 048
     Dates: start: 20140709, end: 20140722
  9. KEPPRA [Suspect]
     Active Substance: LEVETIRACETAM
     Dosage: 500 MG DAILY
     Route: 048
     Dates: start: 20141216, end: 20150102
  10. PHENOBAL [Concomitant]
     Active Substance: PHENOBARBITAL
     Dosage: 130MG
     Route: 048
     Dates: start: 20140528, end: 20140604
  11. PHENOBAL [Concomitant]
     Active Substance: PHENOBARBITAL
     Dosage: 120MG
     Route: 048
     Dates: start: 20140605, end: 20140611
  12. RISPERDAL [Concomitant]
     Active Substance: RISPERIDONE
     Dosage: 9 MG
     Route: 048
     Dates: start: 20140730, end: 20140805
  13. RISPERDAL [Concomitant]
     Active Substance: RISPERIDONE
     Dosage: 6MG
     Route: 048
     Dates: start: 20140924, end: 20141223
  14. RISPERDAL [Concomitant]
     Active Substance: RISPERIDONE
     Dosage: 6MG
     Route: 048
     Dates: start: 20150324
  15. KONSUBEN [Concomitant]
     Indication: PRODUCT USED FOR UNKNOWN INDICATION
     Dosage: 7.5MG
     Route: 048
     Dates: end: 20140604
  16. KONSUBEN [Concomitant]
     Dosage: 2.5MG
     Route: 048
     Dates: start: 20140605, end: 20140722
  17. SELENICA-R [Concomitant]
     Active Substance: SELENIUM
     Dosage: 1200MG
     Route: 048
     Dates: start: 20150210
  18. KEPPRA [Suspect]
     Active Substance: LEVETIRACETAM
     Dosage: 250 MG DAILY
     Route: 048
     Dates: start: 20140827, end: 20140902
  19. KEPPRA [Suspect]
     Active Substance: LEVETIRACETAM
     Indication: EPILEPSY
     Dosage: 200 MG DAILY
     Route: 048
     Dates: start: 20141126, end: 20141215
  20. DEPAKENE [Concomitant]
     Active Substance: VALPROIC ACID
     Indication: PRODUCT USED FOR UNKNOWN INDICATION
     Dosage: 1000 MG DAILY
     Route: 048
     Dates: start: 20100218, end: 20140820
  21. PHENOBAL [Concomitant]
     Active Substance: PHENOBARBITAL
     Dosage: 150 MG
     Route: 048
     Dates: start: 20140514, end: 20140520
  22. RISPERDAL [Concomitant]
     Active Substance: RISPERIDONE
     Dosage: 9 MG
     Route: 048
     Dates: start: 20140528, end: 20140603
  23. KEPPRA [Suspect]
     Active Substance: LEVETIRACETAM
     Dosage: 500 MG DAILY
     Route: 048
     Dates: start: 20140820, end: 20140826
  24. PHENOBAL [Concomitant]
     Active Substance: PHENOBARBITAL
     Dosage: 150MG
     Route: 048
     Dates: start: 20140820
  25. RISPERDAL [Concomitant]
     Active Substance: RISPERIDONE
     Dosage: 9 MG
     Route: 048
     Dates: start: 20140806, end: 20140909
  26. SELENICA-R [Concomitant]
     Active Substance: SELENIUM
     Dosage: 800 MG
     Route: 048
     Dates: start: 20150107, end: 20150127
  27. ZYPREXA [Concomitant]
     Active Substance: OLANZAPINE
     Dosage: 10 MG
     Route: 048
     Dates: start: 20140423, end: 20140429
  28. ZYPREXA [Concomitant]
     Active Substance: OLANZAPINE
     Dosage: 8MG
     Route: 048
     Dates: start: 20140430, end: 20140513
  29. ZYPREXA [Concomitant]
     Active Substance: OLANZAPINE
     Dosage: 4MG
     Route: 048
     Dates: start: 20140521, end: 20140527
  30. KEPPRA [Suspect]
     Active Substance: LEVETIRACETAM
     Dosage: 1000 MG DAILY
     Route: 048
     Dates: start: 20140723, end: 20140819
  31. DEPAKENE [Concomitant]
     Active Substance: VALPROIC ACID
     Dosage: 800 MG DAILY
     Route: 048
     Dates: start: 20140820, end: 20140902
  32. PHENOBAL [Concomitant]
     Active Substance: PHENOBARBITAL
     Dosage: 100MG
     Route: 048
     Dates: start: 20140625, end: 20140701
  33. PHENOBAL [Concomitant]
     Active Substance: PHENOBARBITAL
     Dosage: 90MG
     Route: 048
     Dates: start: 20140702, end: 20140722
  34. SELENICA-R [Concomitant]
     Active Substance: SELENIUM
     Dosage: 1000 MG
     Route: 048
     Dates: start: 20150128, end: 20150209
  35. ZYPREXA [Concomitant]
     Active Substance: OLANZAPINE
     Indication: PRODUCT USED FOR UNKNOWN INDICATION
     Dosage: 15 MG
     Route: 048
     Dates: start: 20120901, end: 20140422
  36. KEPPRA [Suspect]
     Active Substance: LEVETIRACETAM
     Dosage: 1250 MG DAILY
     Route: 048
     Dates: start: 20140514, end: 20140604
  37. PHENOBAL [Concomitant]
     Active Substance: PHENOBARBITAL
     Dosage: 140 MG
     Route: 048
     Dates: start: 20140521, end: 20140527
  38. PHENOBAL [Concomitant]
     Active Substance: PHENOBARBITAL
     Dosage: 110MG
     Route: 048
     Dates: start: 20140612, end: 20140624
  39. RISPERDAL [Concomitant]
     Active Substance: RISPERIDONE
     Dosage: 6 MG
     Route: 048
     Dates: start: 20140423, end: 20140513
  40. RISPERDAL [Concomitant]
     Active Substance: RISPERIDONE
     Dosage: 8 MG
     Route: 048
     Dates: start: 20140702, end: 20140729
  41. ZYPREXA [Concomitant]
     Active Substance: OLANZAPINE
     Dosage: 6MG
     Route: 048
     Dates: start: 20140514, end: 20140520
  42. ZYPREXA [Concomitant]
     Active Substance: OLANZAPINE
     Dosage: 5MG
     Route: 048
     Dates: start: 20140902
  43. BORRAZA-G [Concomitant]
     Active Substance: LIDOCAINE\TRIBENOSIDE
     Indication: PRODUCT USED FOR UNKNOWN INDICATION
     Dosage: 2.4G
     Route: 061
     Dates: start: 20140701, end: 20140722
  44. DEPAKENE [Concomitant]
     Active Substance: VALPROIC ACID
     Dosage: 600 MG DAILY
     Route: 048
     Dates: start: 20140903, end: 20141014
  45. PHENOBAL [Concomitant]
     Active Substance: PHENOBARBITAL
     Dosage: 40MG
     Route: 048
     Dates: start: 20140806, end: 20140819
  46. RISPERDAL [Concomitant]
     Active Substance: RISPERIDONE
     Indication: PRODUCT USED FOR UNKNOWN INDICATION
     Dosage: 5 MG
     Route: 048
     Dates: start: 20131205, end: 20140422
  47. RISPERDAL [Concomitant]
     Active Substance: RISPERIDONE
     Dosage: 8 MG
     Route: 048
     Dates: start: 20140521, end: 20140527
  48. RISPERDAL [Concomitant]
     Active Substance: RISPERIDONE
     Dosage: 10 MG
     Route: 048
     Dates: start: 20140604, end: 20140624
  49. RISPERDAL [Concomitant]
     Active Substance: RISPERIDONE
     Dosage: 9 MG
     Route: 048
     Dates: start: 20140625, end: 20140701
  50. RISPERDAL [Concomitant]
     Active Substance: RISPERIDONE
     Dosage: 7MG
     Route: 048
     Dates: start: 20140910, end: 20140923
  51. ZYPREXA [Concomitant]
     Active Substance: OLANZAPINE
     Dosage: 2MG
     Route: 048
     Dates: start: 20140528, end: 20140603
  52. KEPPRA [Suspect]
     Active Substance: LEVETIRACETAM
     Dosage: 1500 MG DAILY
     Route: 048
     Dates: start: 20140605, end: 20140708
  53. RISPERDAL [Concomitant]
     Active Substance: RISPERIDONE
     Dosage: 7 MG
     Route: 048
     Dates: start: 20140514, end: 20140520

REACTIONS (4)
  - Psychiatric symptom [Recovering/Resolving]
  - Anger [Recovering/Resolving]
  - Anticonvulsant drug level decreased [Unknown]
  - Epilepsy [Unknown]

NARRATIVE: CASE EVENT DATE: 2014
